FAERS Safety Report 8142372-0 (Version None)
Quarter: 2012Q1

REPORT INFORMATION
  Report Type: 
  Country: None (occurrence: None)
  Receive Date: 20120216
  Receipt Date: 20120209
  Transmission Date: 20120608
  Serious: Yes (Other)
  Sender: FDA-Public Use
  Company Number: PHHY2011FR114634

PATIENT
  Sex: Female
  Weight: 55 kg

DRUGS (8)
  1. ZOLEDRONOC ACID [Suspect]
     Dosage: UNK UKN, UNK
     Route: 042
     Dates: start: 20111216
  2. EZETIMIBE [Concomitant]
     Dosage: UNK UKN, UNK
  3. NEBIVOLOL HCL [Concomitant]
     Dosage: UNK UKN, UNK
  4. VALSARTAN  AND HYDROCHLOROTHIAZIDE [Concomitant]
     Dosage: 160 MG/25 MG (VALSARTAN, HYDROCHLOROTHIAZIDE)
  5. PREVISCAN [Concomitant]
     Dosage: UNK UKN, UNK
  6. POTASSIUM CHLORIDE [Concomitant]
     Dosage: UNK UKN, UNK
  7. ZOLEDRONOC ACID [Suspect]
     Indication: OSTEOPOROSIS
     Dosage: UNK UKN, UNK
     Route: 042
  8. IPERTEN [Concomitant]
     Dosage: UNK UKN, UNK

REACTIONS (5)
  - HYPERTHERMIA [None]
  - MUSCULOSKELETAL STIFFNESS [None]
  - TOXOPLASMOSIS [None]
  - INFLUENZA LIKE ILLNESS [None]
  - CYTOMEGALOVIRUS INFECTION [None]
